FAERS Safety Report 9997297 (Version 1)
Quarter: 2014Q1

REPORT INFORMATION
  Report Type: Spontaneous
  Country: US (occurrence: US)
  Receive Date: 20140311
  Receipt Date: 20140311
  Transmission Date: 20141002
  Serious: No
  Sender: FDA-Public Use
  Company Number: US-GLAXOSMITHKLINE-A1031038A

PATIENT
  Age: 44 Year
  Sex: Male

DRUGS (1)
  1. NICORETTE MINT OTC 2MG [Suspect]
     Indication: EX-TOBACCO USER
     Dates: start: 20130629

REACTIONS (8)
  - Hypoaesthesia [Not Recovered/Not Resolved]
  - Nerve injury [Not Recovered/Not Resolved]
  - Deep vein thrombosis [Not Recovered/Not Resolved]
  - Sensory loss [Not Recovered/Not Resolved]
  - Throat irritation [Recovered/Resolved]
  - Oropharyngeal discomfort [Recovered/Resolved]
  - Sensation of foreign body [Recovered/Resolved]
  - Drug administration error [Unknown]
